FAERS Safety Report 10171064 (Version 1)
Quarter: 2014Q2

REPORT INFORMATION
  Report Type: Spontaneous
  Country: US (occurrence: US)
  Receive Date: 20140514
  Receipt Date: 20140514
  Transmission Date: 20141212
  Serious: Yes (Hospitalization)
  Sender: FDA-Public Use
  Company Number: US-JNJFOC-20140506656

PATIENT
  Sex: Female
  Weight: 77.11 kg

DRUGS (5)
  1. DURAGESIC [Suspect]
     Indication: PAIN
     Route: 062
  2. DURAGESIC [Suspect]
     Indication: PAIN
     Route: 062
  3. METHADONE [Concomitant]
     Indication: PAIN
     Dosage: IN 2001 OR 2002
     Route: 048
  4. VALIUM [Concomitant]
     Indication: MUSCLE SPASMS
     Dosage: IN 2001 OR 2002
     Route: 048
  5. VALIUM [Concomitant]
     Indication: NERVOUSNESS
     Dosage: IN 2001 OR 2002
     Route: 048

REACTIONS (1)
  - Staphylococcal infection [Recovered/Resolved]
